FAERS Safety Report 5270338-7 (Version None)
Quarter: 2007Q1

REPORT INFORMATION
  Report Type: 
  Country: None (occurrence: None)
  Receive Date: 20070314
  Receipt Date: 20070301
  Transmission Date: 20070707
  Serious: Yes (Life-Threatening, Hospitalization)
  Sender: FDA-Public Use
  Company Number: GXKR2007ES02186

PATIENT
  Age: 26 Year
  Sex: Male

DRUGS (3)
  1. PHENYTOIN [Suspect]
  2. CEFTRIAXONE [Suspect]
  3. TOBRAMYCIN [Concomitant]

REACTIONS (14)
  - CONFUSIONAL STATE [None]
  - DERMATITIS EXFOLIATIVE [None]
  - DRUG HYPERSENSITIVITY [None]
  - EOSINOPHILIA [None]
  - HAEMODIALYSIS [None]
  - HEPATOCELLULAR DAMAGE [None]
  - HYPERSENSITIVITY [None]
  - LEUKOCYTOSIS [None]
  - LYMPHADENOPATHY [None]
  - NEPHRITIS INTERSTITIAL [None]
  - PSYCHOMOTOR HYPERACTIVITY [None]
  - PYREXIA [None]
  - RASH [None]
  - RENAL FAILURE [None]
